FAERS Safety Report 16167094 (Version 2)
Quarter: 2019Q2

REPORT INFORMATION
  Report Type: Spontaneous
  Country: DE (occurrence: DE)
  Receive Date: 20190408
  Receipt Date: 20190503
  Transmission Date: 20190711
  Serious: Yes (Life-Threatening, Hospitalization)
  Sender: FDA-Public Use
  Company Number: DE-ROCHE-2298440

PATIENT
  Sex: Female
  Weight: 60 kg

DRUGS (7)
  1. ISCADOR [Concomitant]
     Active Substance: VISCUM ALBUM FRUITING TOP
     Route: 058
  2. ALECENSA [Suspect]
     Active Substance: ALECTINIB HYDROCHLORIDE
     Indication: PRODUCT USED FOR UNKNOWN INDICATION
     Route: 065
     Dates: start: 20190208, end: 20190326
  3. MORPHINE [Concomitant]
     Active Substance: MORPHINE
     Route: 048
  4. LEVETIRACETAM. [Concomitant]
     Active Substance: LEVETIRACETAM
     Indication: SEIZURE
     Dosage: 0-0-1
     Route: 048
     Dates: start: 201904
  5. CLEXANE [Concomitant]
     Active Substance: ENOXAPARIN SODIUM
     Indication: PROPHYLAXIS
     Dosage: 0-0-1
     Route: 058
     Dates: start: 20190304
  6. PANTOPRAZOLE [Concomitant]
     Active Substance: PANTOPRAZOLE
     Indication: PROPHYLAXIS
     Dosage: 1-0-0
     Route: 048
     Dates: start: 201903
  7. MORPHINE [Concomitant]
     Active Substance: MORPHINE
     Route: 058

REACTIONS (1)
  - Hepatic failure [Not Recovered/Not Resolved]
